FAERS Safety Report 25324925 (Version 1)
Quarter: 2025Q2

REPORT INFORMATION
  Report Type: Spontaneous
  Country: US (occurrence: US)
  Receive Date: 20250516
  Receipt Date: 20250516
  Transmission Date: 20250717
  Serious: No
  Sender: EISAI
  Company Number: US-Eisai-EC-2025-188387

PATIENT
  Age: 74 Year
  Sex: Female
  Weight: 58.5 kg

DRUGS (2)
  1. LENVIMA [Suspect]
     Active Substance: LENVATINIB
     Indication: Endometrial cancer
     Dates: start: 202410, end: 20250225
  2. LENVIMA [Suspect]
     Active Substance: LENVATINIB
     Dates: start: 20250226

REACTIONS (1)
  - Jugular vein occlusion [Recovering/Resolving]

NARRATIVE: CASE EVENT DATE: 20250415
